FAERS Safety Report 9594680 (Version 1)
Quarter: 2013Q3

REPORT INFORMATION
  Report Type: Spontaneous
  Country: US (occurrence: None)
  Receive Date: 20130927
  Receipt Date: 20130927
  Transmission Date: 20140515
  Serious: Yes (Hospitalization)
  Sender: FDA-Public Use
  Company Number: CABO-13003088

PATIENT
  Age: 52 Year
  Sex: Female
  Weight: 84.1 kg

DRUGS (1)
  1. COMETRIQ [Suspect]
     Indication: THYROID CANCER
     Route: 048
     Dates: start: 20130701, end: 20130726

REACTIONS (6)
  - Dehydration [None]
  - Vomiting [None]
  - Abdominal pain upper [None]
  - Oesophageal pain [None]
  - Dysgeusia [None]
  - Weight decreased [None]
